FAERS Safety Report 25920814 (Version 1)
Quarter: 2025Q4

REPORT INFORMATION
  Report Type: Spontaneous
  Country: EU (occurrence: EU)
  Receive Date: 20251014
  Receipt Date: 20251014
  Transmission Date: 20260118
  Serious: Yes (Disabling)
  Sender: MYLAN
  Company Number: None

PATIENT
  Age: 65 Year
  Sex: Female

DRUGS (13)
  1. ATORVASTATIN [Suspect]
     Active Substance: ATORVASTATIN
     Indication: Prophylaxis
     Dosage: 10 MILLIGRAM, QD
     Dates: end: 202507
  2. VALACYCLOVIR HYDROCHLORIDE [Suspect]
     Active Substance: VALACYCLOVIR HYDROCHLORIDE
     Indication: Prophylaxis
     Dosage: 500 MILLIGRAM, QD
     Dates: start: 202307
  3. ACETAMINOPHEN [Suspect]
     Active Substance: ACETAMINOPHEN
     Indication: Pain
     Dosage: 1 DOSAGE FORM
  4. AMOXICILLIN [Suspect]
     Active Substance: AMOXICILLIN
     Indication: Prophylaxis
     Dosage: 1 GRAM, QD
     Dates: start: 20231128
  5. RAMIPRIL [Suspect]
     Active Substance: RAMIPRIL
     Indication: Prophylaxis
     Dosage: 2.5 MILLIGRAM, QD
  6. ELREXFIO [Suspect]
     Active Substance: ELRANATAMAB-BCMM
     Indication: Plasma cell myeloma
     Dosage: UNK
  7. ELREXFIO [Suspect]
     Active Substance: ELRANATAMAB-BCMM
     Dosage: 1 DOSAGE FORM, MONTHLY
     Dates: start: 202406, end: 202505
  8. VILDAGLIPTIN [Suspect]
     Active Substance: VILDAGLIPTIN
     Indication: Type 2 diabetes mellitus
     Dosage: 1 DOSAGE FORM, QD
  9. RETACRIT [Suspect]
     Active Substance: EPOETIN ALFA-EPBX
     Indication: Anaemia
     Dosage: 1 DOSAGE FORM, QW (SOLUTION FOR INJECTION IN PRE-FILLED SYRINGE)
  10. HYQVIA [Concomitant]
     Active Substance: HUMAN IMMUNOGLOBULIN G\HYALURONIDASE (HUMAN RECOMBINANT)
     Dosage: 20 GRAM (10 DAYS)
  11. LANSOPRAZOLE [Concomitant]
     Active Substance: LANSOPRAZOLE
     Dosage: 30 MILLIGRAM, QD
     Dates: start: 202307, end: 202504
  12. AREDIA [Concomitant]
     Active Substance: PAMIDRONATE DISODIUM
     Dosage: 60 MILLIGRAM, 1 CYCLE
     Dates: start: 20240328, end: 20240521
  13. SORIATANE [Concomitant]
     Active Substance: ACITRETIN
     Dosage: UNK

REACTIONS (1)
  - Chronic kidney disease [Not Recovered/Not Resolved]

NARRATIVE: CASE EVENT DATE: 20240701
